FAERS Safety Report 8271263-X (Version None)
Quarter: 2012Q2

REPORT INFORMATION
  Report Type: 
  Country: None (occurrence: None)
  Receive Date: 20120410
  Receipt Date: 20120405
  Transmission Date: 20120825
  Serious: Yes (Hospitalization)
  Sender: FDA-Public Use
  Company Number: FR-PFIZER INC-2012074290

PATIENT
  Age: 28 Year
  Sex: Male
  Weight: 72 kg

DRUGS (19)
  1. LEVOTHYROXINE SODIUM [Concomitant]
     Indication: BLOOD THYROID STIMULATING HORMONE DECREASED
     Dosage: UNK
     Route: 048
     Dates: start: 20070119
  2. HYDROCORTISONE [Concomitant]
     Indication: BLOOD CORTICOTROPHIN DECREASED
     Dosage: 10 MG, 1X/DAY
     Route: 048
     Dates: start: 20050119, end: 20060226
  3. HYDROCORTISONE [Concomitant]
     Dosage: UNK
     Route: 048
     Dates: start: 20100202
  4. MINIRIN ^AVENTIS PHARMA^ [Concomitant]
     Indication: BLOOD ANTIDIURETIC HORMONE DECREASED
     Dosage: UNK
     Route: 048
     Dates: start: 20050119
  5. HUMALOG [Concomitant]
     Indication: DIABETES MELLITUS
     Dosage: UNK
     Route: 051
     Dates: start: 20070723
  6. HYDROCORTISONE [Concomitant]
     Dosage: 20 MG, 1X/DAY
     Route: 048
     Dates: start: 20060227, end: 20100202
  7. EFFEXOR [Concomitant]
     Indication: MAJOR DEPRESSION
     Dosage: UNK
     Route: 048
     Dates: start: 20070601
  8. AMISULPRIDE [Concomitant]
     Indication: MAJOR DEPRESSION
     Dosage: UNK
     Route: 048
     Dates: start: 20070601
  9. ANDROTARDYL [Concomitant]
     Indication: HYPOGONADISM MALE
  10. ASPIRIN [Concomitant]
     Indication: ESSENTIAL HYPERTENSION
     Dosage: UNK
     Route: 048
     Dates: start: 20050101
  11. LANTUS [Concomitant]
     Indication: DIABETES MELLITUS
     Dosage: UNK
     Route: 051
     Dates: start: 20070723
  12. AMLODIPINE BESYLATE [Concomitant]
     Indication: ESSENTIAL HYPERTENSION
     Dosage: 5 UNK, UNK
     Route: 048
     Dates: start: 20070601
  13. LEVOTHYROXINE SODIUM [Concomitant]
     Indication: PRIMARY HYPOTHYROIDISM
  14. INDAPAMIDE [Concomitant]
     Indication: ESSENTIAL HYPERTENSION
     Dosage: UNK
     Route: 048
     Dates: start: 20060601
  15. SOMATROPIN RDNA [Suspect]
     Dosage: 0.2 MG, 1X/DAY, 7 INJECTIONS A WEEK
     Dates: start: 20050119
  16. COZAAR [Concomitant]
     Indication: ESSENTIAL HYPERTENSION
     Dosage: UNK
     Route: 048
     Dates: start: 20050101
  17. VALPROIC ACID [Concomitant]
     Indication: MAJOR DEPRESSION
     Dosage: 300 UNK, UNK
     Route: 048
     Dates: start: 20070601
  18. ANDROTARDYL [Concomitant]
     Indication: BLOOD LUTEINISING HORMONE DECREASED
     Dosage: UNK
     Route: 051
     Dates: start: 20060227
  19. ANDROTARDYL [Concomitant]
     Indication: BLOOD FOLLICLE STIMULATING HORMONE DECREASED

REACTIONS (2)
  - PULMONARY EMBOLISM [None]
  - DYSPNOEA [None]
